FAERS Safety Report 6094255-8 (Version None)
Quarter: 2009Q1

REPORT INFORMATION
  Report Type: 
  Country: None (occurrence: None)
  Receive Date: 20090223
  Receipt Date: 20090217
  Transmission Date: 20090719
  Serious: Yes (Hospitalization)
  Sender: FDA-Public Use
  Company Number: FR-1168422

PATIENT
  Age: 57 Year
  Sex: Male

DRUGS (5)
  1. TOBRADEX  (TOBRADEX) OPHTHALMIC SUSPENSION [Suspect]
     Dosage: OPHTHALMIC
     Route: 047
     Dates: start: 20081020, end: 20081020
  2. NEOSYNEPHRINE  [PHENYLEPHRINE HYDROCHLORIDE] [Concomitant]
  3. PILOCARPINE (PILOCARPINE HYDROCHLORIDE) [Concomitant]
  4. STERDEX (STER-DEX) [Concomitant]
  5. TROPICAMIDE [Concomitant]

REACTIONS (4)
  - EYE INFECTION INTRAOCULAR [None]
  - STREPTOCOCCAL INFECTION [None]
  - UVEITIS [None]
  - VITRITIS [None]
